FAERS Safety Report 4832332-7 (Version None)
Quarter: 2005Q4

REPORT INFORMATION
  Report Type: 
  Country: None (occurrence: None)
  Receive Date: 20051121
  Receipt Date: 20030407
  Transmission Date: 20060501
  Serious: Yes (Hospitalization)
  Sender: FDA-Public Use
  Company Number: TW-BOEHRINGER INGELHEIM PHARM. INC.-2003-BP-02158BP

PATIENT
  Sex: Female
  Weight: 46 kg

DRUGS (15)
  1. MICARDIS [Suspect]
     Indication: CARDIOVASCULAR DISORDER
     Route: 048
     Dates: start: 20030311, end: 20030321
  2. MICARDIS [Suspect]
     Indication: CEREBROVASCULAR ACCIDENT PROPHYLAXIS
  3. RAMIPRIL [Suspect]
     Indication: CARDIOVASCULAR DISORDER
     Route: 048
     Dates: start: 20030311, end: 20030321
  4. RAMIPRIL [Suspect]
     Indication: CEREBROVASCULAR ACCIDENT PROPHYLAXIS
  5. ASPIRIN [Concomitant]
  6. MAGNESIUM OXIDE [Concomitant]
  7. CARVEDILOL [Concomitant]
  8. BISACODYL [Concomitant]
  9. GLIMEPIRIDE [Concomitant]
  10. METFORMIN [Concomitant]
  11. NICARDIPINE HCL [Concomitant]
  12. METHOCARBAMOL [Concomitant]
  13. ATORVASTATIN CALCIUM [Concomitant]
  14. PROGLITAZONE [Concomitant]
  15. PROSULTIAMINE [Concomitant]

REACTIONS (7)
  - DIABETES MELLITUS [None]
  - HAEMORRHAGE INTRACRANIAL [None]
  - HEAD INJURY [None]
  - MOVEMENT DISORDER [None]
  - NERVOUS SYSTEM DISORDER [None]
  - ORTHOSTATIC HYPOTENSION [None]
  - SYNCOPE [None]
